FAERS Safety Report 22777151 (Version 4)
Quarter: 2024Q2

REPORT INFORMATION
  Report Type: Report from Study
  Country: US (occurrence: US)
  Receive Date: 20230802
  Receipt Date: 20240429
  Transmission Date: 20240715
  Serious: Yes (Hospitalization)
  Sender: FDA-Public Use
  Company Number: US-ARGENX-2023-ARGX-US000841

PATIENT

DRUGS (4)
  1. VYVGART [Suspect]
     Active Substance: EFGARTIGIMOD ALFA-FCAB
     Indication: Myasthenia gravis
     Dosage: 1200 MG WEEKLY FOR 4 WEEKS
     Route: 042
     Dates: start: 20230315
  2. VYVGART [Suspect]
     Active Substance: EFGARTIGIMOD ALFA-FCAB
     Dosage: 1000 MG, OVER 60 MINUTES, 1/WEEK, FOR 4 WEEKS, DILUTE BEFORE USE, REPEAT CYCLE EVERY 10 WEEKS, 400MG
     Route: 042
     Dates: start: 202303
  3. SODIUM CHLORIDE [Concomitant]
     Active Substance: SODIUM CHLORIDE
     Indication: Product used for unknown indication
     Dosage: 100 ML/BAG
     Route: 065
  4. EPINEPHRINE [Concomitant]
     Active Substance: EPINEPHRINE
     Indication: Product used for unknown indication
     Dosage: AUTO INJECTOR
     Route: 065

REACTIONS (12)
  - Respiratory disorder [Unknown]
  - Depression [Not Recovered/Not Resolved]
  - Fatigue [Not Recovered/Not Resolved]
  - Urinary tract infection [Not Recovered/Not Resolved]
  - Wheelchair user [Unknown]
  - Productive cough [Unknown]
  - Sputum discoloured [Unknown]
  - Fall [Unknown]
  - Weight decreased [Unknown]
  - Therapy non-responder [Unknown]
  - Fall [Unknown]
  - Somnolence [Unknown]

NARRATIVE: CASE EVENT DATE: 20230402
